FAERS Safety Report 9238112 (Version 1)
Quarter: 2013Q2

REPORT INFORMATION
  Report Type: Report from Study
  Country: US (occurrence: US)
  Receive Date: 20130418
  Receipt Date: 20130418
  Transmission Date: 20140414
  Serious: Yes (Hospitalization)
  Sender: FDA-Public Use
  Company Number: PHEH2013US008475

PATIENT
  Age: 75 Year
  Sex: Female

DRUGS (3)
  1. EXELON PATCH [Suspect]
     Indication: DEMENTIA ALZHEIMER^S TYPE
     Dosage: 9.5 MG, DAILY
     Route: 062
  2. ARICEPT [Concomitant]
  3. DIOVAN [Concomitant]

REACTIONS (1)
  - Loss of consciousness [Unknown]
